FAERS Safety Report 6201617-4 (Version None)
Quarter: 2009Q2

REPORT INFORMATION
  Report Type: 
  Country: None (occurrence: None)
  Receive Date: 20090518
  Receipt Date: 20090407
  Transmission Date: 20091009
  Serious: No
  Sender: FDA-Public Use
  Company Number: WAES 0904USA00994

PATIENT
  Age: 50 Year
  Sex: Female

DRUGS (3)
  1. JANUVIA [Suspect]
     Dosage: PO
     Route: 048
  2. GLIMEPIRIDE [Concomitant]
  3. METFORMIN HYDROCHLORIDE [Concomitant]

REACTIONS (2)
  - ARTHRALGIA [None]
  - NAUSEA [None]
